FAERS Safety Report 8775899 (Version 1)
Quarter: 2012Q4

REPORT INFORMATION
  Report Type: 
  Country: JP (occurrence: JP)
  Receive Date: 20120910
  Receipt Date: 20120910
  Transmission Date: 20130627
  Serious: Yes (Disabling)
  Sender: FDA-Public Use
  Company Number: JP-ROCHE-1120944

PATIENT
  Age: 9 None
  Sex: Female

DRUGS (3)
  1. LUPRAC [Suspect]
     Indication: PRODUCT USED FOR UNKNOWN INDICATION
     Route: 048
  2. CELECOX [Suspect]
     Indication: PRODUCT USED FOR UNKNOWN INDICATION
     Route: 048
  3. OMEPRAL [Concomitant]

REACTIONS (1)
  - Tubulointerstitial nephritis [Recovered/Resolved with Sequelae]
